FAERS Safety Report 19488628 (Version 3)
Quarter: 2024Q4

REPORT INFORMATION
  Report Type: Spontaneous
  Country: US (occurrence: US)
  Receive Date: 20210702
  Receipt Date: 20241223
  Transmission Date: 20250114
  Serious: No
  Sender: PFIZER
  Company Number: US-PFIZER INC-2021540379

PATIENT
  Age: 61 Year
  Sex: Female
  Weight: 107 kg

DRUGS (2)
  1. INLYTA [Suspect]
     Active Substance: AXITINIB
     Dosage: 5 MG, 2X/DAY (5 MG X 1 TABLET TWICE A DAY)
     Route: 048
     Dates: start: 20210402
  2. INLYTA [Suspect]
     Active Substance: AXITINIB
     Dosage: 2X/DAY (1 MG X 3 TABLET EVERY AM, 1 MG X 2 TABLET EVERY PM)
     Route: 048

REACTIONS (5)
  - Oropharyngeal pain [Not Recovered/Not Resolved]
  - Urinary tract infection [Not Recovered/Not Resolved]
  - Hypertension [Not Recovered/Not Resolved]
  - Dysphonia [Not Recovered/Not Resolved]
  - Stomatitis [Not Recovered/Not Resolved]
